FAERS Safety Report 18134322 (Version 1)
Quarter: 2020Q3

REPORT INFORMATION
  Report Type: Spontaneous
  Country: US (occurrence: US)
  Receive Date: 20200810
  Receipt Date: 20200810
  Transmission Date: 20201103
  Serious: No
  Sender: FDA-Public Use
  Company Number: None

PATIENT
  Age: 60 Year
  Sex: Female

DRUGS (1)
  1. KISQALI [Suspect]
     Active Substance: RIBOCICLIB
     Indication: BREAST CANCER FEMALE
     Route: 048
     Dates: start: 20200316

REACTIONS (4)
  - Vomiting [None]
  - Nausea [None]
  - Extra dose administered [None]
  - Loss of consciousness [None]

NARRATIVE: CASE EVENT DATE: 20200803
